FAERS Safety Report 21663446 (Version 1)
Quarter: 2022Q4

REPORT INFORMATION
  Report Type: Spontaneous
  Country: US (occurrence: None)
  Receive Date: 20221129
  Receipt Date: 20221129
  Transmission Date: 20230113
  Serious: No
  Sender: FDA-Public Use
  Company Number: None

PATIENT
  Age: 58 Year
  Sex: Female
  Weight: 53.1 kg

DRUGS (3)
  1. OSELTAMIVIR PHOSPHATE [Suspect]
     Active Substance: OSELTAMIVIR PHOSPHATE
     Indication: Influenza
     Dosage: FREQUENCY : TWICE A DAY;?
     Route: 048
     Dates: start: 20221127, end: 20221129
  2. VITAMIN C [Concomitant]
     Active Substance: ASCORBIC ACID
  3. ZINC [Concomitant]
     Active Substance: ZINC

REACTIONS (3)
  - Vaginal haemorrhage [None]
  - Abdominal pain [None]
  - Abdominal discomfort [None]

NARRATIVE: CASE EVENT DATE: 20221129
